FAERS Safety Report 9987939 (Version 1)
Quarter: 2014Q1

REPORT INFORMATION
  Report Type: Spontaneous
  Country: US (occurrence: US)
  Receive Date: 20140307
  Receipt Date: 20140307
  Transmission Date: 20141002
  Serious: No
  Sender: FDA-Public Use
  Company Number: US-AMGEN-USASP2014015165

PATIENT
  Age: 75 Year
  Sex: Female

DRUGS (2)
  1. ENBREL [Suspect]
     Indication: RHEUMATOID ARTHRITIS
     Dosage: 50 MG WEEKLY
     Route: 065
     Dates: start: 20140115
  2. PREDNISONE [Concomitant]
     Dosage: UNK

REACTIONS (2)
  - Vitreous floaters [Not Recovered/Not Resolved]
  - Injection site bruising [Not Recovered/Not Resolved]
